FAERS Safety Report 12732708 (Version 1)
Quarter: 2016Q3

REPORT INFORMATION
  Report Type: Spontaneous
  Country: US (occurrence: US)
  Receive Date: 20160910
  Receipt Date: 20160910
  Transmission Date: 20161109
  Serious: Yes (Other)
  Sender: FDA-Public Use
  Company Number: None

PATIENT
  Age: 66 Year
  Sex: Female
  Weight: 78.75 kg

DRUGS (8)
  1. METOPROLOL. [Concomitant]
     Active Substance: METOPROLOL
  2. MINERALS [Concomitant]
     Active Substance: MINERALS
  3. IBUPROFEN. [Concomitant]
     Active Substance: IBUPROFEN
  4. TAMOXIFEN 20 MYLAN [Suspect]
     Active Substance: TAMOXIFEN
     Indication: PROPHYLAXIS
     Route: 048
  5. PREDNISONE. [Concomitant]
     Active Substance: PREDNISONE
  6. TAMOXIFEN 20 MYLAN [Suspect]
     Active Substance: TAMOXIFEN
     Indication: HER-2 POSITIVE BREAST CANCER
     Route: 048
  7. HYRDOXYCHLOROQUINE [Concomitant]
  8. VITAMINS [Concomitant]
     Active Substance: VITAMINS

REACTIONS (7)
  - Cardiac disorder [None]
  - Asthenia [None]
  - Heart rate increased [None]
  - Dysuria [None]
  - Pulse absent [None]
  - Fatigue [None]
  - Depressed mood [None]
